FAERS Safety Report 24889956 (Version 1)
Quarter: 2025Q1

REPORT INFORMATION
  Report Type: Spontaneous
  Country: US (occurrence: None)
  Receive Date: 20250124
  Receipt Date: 20250124
  Transmission Date: 20250409
  Serious: Yes (Hospitalization)
  Sender: FDA-CTU
  Company Number: None

PATIENT
  Age: 83 Year
  Sex: Female
  Weight: 41.85 kg

DRUGS (6)
  1. AZELASTINE HYDROCHLORIDE [Suspect]
     Active Substance: AZELASTINE HYDROCHLORIDE
     Indication: Seasonal allergy
     Dosage: 2 SPRAYS NASAL SPRAY DAILY
     Route: 050
     Dates: start: 20220331, end: 20250107
  2. ROSUVASTATIN [Suspect]
     Active Substance: ROSUVASTATIN
  3. Restasis OP [Concomitant]
  4. METOPROLOL TARTRATE [Suspect]
     Active Substance: METOPROLOL TARTRATE
  5. VITAMIN D3 [Concomitant]
     Active Substance: CHOLECALCIFEROL
  6. turmeric with black pepper [Concomitant]

REACTIONS (6)
  - Palpitations [None]
  - Dizziness [None]
  - Nausea [None]
  - Vomiting [None]
  - Myalgia [None]
  - Headache [None]

NARRATIVE: CASE EVENT DATE: 20240905
